FAERS Safety Report 17345929 (Version 2)
Quarter: 2020Q1

REPORT INFORMATION
  Report Type: Spontaneous
  Country: SI (occurrence: SI)
  Receive Date: 20200129
  Receipt Date: 20200217
  Transmission Date: 20200409
  Serious: Yes (Other)
  Sender: FDA-Public Use
  Company Number: SI-US-PROVELL PHARMACEUTICALS LLC-9141653

PATIENT
  Age: 58 Year
  Sex: Female

DRUGS (2)
  1. EUTHYROX NF [Suspect]
     Active Substance: LEVOTHYROXINE SODIUM
     Indication: HYPOTHYROIDISM
     Dosage: EUTHYROX 25 MCG AND EUTHYROX 100 MCG
     Dates: start: 20191118, end: 20200115
  2. EUTHYROX NF [Suspect]
     Active Substance: LEVOTHYROXINE SODIUM
     Dates: start: 2020

REACTIONS (4)
  - Weight increased [Unknown]
  - Slow speech [Recovered/Resolved]
  - Face oedema [Recovered/Resolved]
  - Hypothyroidism [Recovering/Resolving]

NARRATIVE: CASE EVENT DATE: 20200115
